FAERS Safety Report 9800737 (Version 1)
Quarter: 2014Q1

REPORT INFORMATION
  Report Type: Spontaneous
  Country: US (occurrence: US)
  Receive Date: 20140107
  Receipt Date: 20140107
  Transmission Date: 20141002
  Serious: No
  Sender: FDA-Public Use
  Company Number: US-PFIZER INC-2014001878

PATIENT
  Age: 57 Year
  Sex: Female
  Weight: 63.49 kg

DRUGS (2)
  1. PANTOPRAZOLE [Suspect]
     Indication: GASTROOESOPHAGEAL REFLUX DISEASE
     Dosage: 40 MG, 2X/DAY
     Dates: start: 201312
  2. PANTOPRAZOLE [Suspect]
     Indication: HERNIA

REACTIONS (1)
  - Headache [Unknown]
